FAERS Safety Report 10165553 (Version 1)
Quarter: 2014Q2

REPORT INFORMATION
  Report Type: Spontaneous
  Country: US (occurrence: US)
  Receive Date: 20140510
  Receipt Date: 20140510
  Transmission Date: 20141212
  Serious: No
  Sender: FDA-Public Use
  Company Number: US-BRISTOL-MYERS SQUIBB COMPANY-19861616

PATIENT
  Age: 49 Year
  Sex: Female
  Weight: 81.63 kg

DRUGS (2)
  1. BYDUREON [Suspect]
     Dosage: 1ST INJECTION: DEC 2013, 2ND INJ: 2015
     Dates: start: 20131110
  2. METFORMIN [Concomitant]

REACTIONS (3)
  - Injection site pruritus [Unknown]
  - Injection site swelling [Unknown]
  - Injection site erythema [Unknown]
